FAERS Safety Report 10927186 (Version 2)
Quarter: 2015Q2

REPORT INFORMATION
  Report Type: Spontaneous
  Country: US (occurrence: US)
  Receive Date: 20150318
  Receipt Date: 20150430
  Transmission Date: 20150821
  Serious: Yes (Life-Threatening, Hospitalization, Disabling, Other)
  Sender: FDA-Public Use
  Company Number: US-009507513-1503USA004875

PATIENT
  Age: 40 Year
  Sex: Female

DRUGS (6)
  1. ZOFRAN [Concomitant]
     Active Substance: ONDANSETRON HYDROCHLORIDE
     Indication: NAUSEA
  2. TEMODAR [Suspect]
     Active Substance: TEMOZOLOMIDE
     Dosage: 500 MG, QD FOR FIVE DAYS FOR FOUR WEEKS
     Route: 048
     Dates: end: 2006
  3. TEMODAR [Suspect]
     Active Substance: TEMOZOLOMIDE
     Indication: OLIGOASTROCYTOMA
     Dosage: 250 MG, FOR FIVE DAYS FOR FOUR WEEKS
     Route: 048
     Dates: start: 200406
  4. TEMODAR [Suspect]
     Active Substance: TEMOZOLOMIDE
     Dosage: 500 MG, QD  FOR FIVE DAYS FOR 4 WEEKS CYCLE
     Route: 048
     Dates: start: 2009, end: 2010
  5. MIRALAX [Concomitant]
     Active Substance: POLYETHYLENE GLYCOL 3350
     Indication: CONSTIPATION
  6. KYTRIL [Concomitant]
     Active Substance: GRANISETRON HYDROCHLORIDE
     Indication: NAUSEA

REACTIONS (2)
  - Brain neoplasm [Not Recovered/Not Resolved]
  - Oligoastrocytoma [Not Recovered/Not Resolved]

NARRATIVE: CASE EVENT DATE: 2009
